FAERS Safety Report 6318099-4 (Version None)
Quarter: 2009Q3

REPORT INFORMATION
  Report Type: 
  Country: None (occurrence: None)
  Receive Date: 20090820
  Receipt Date: 20090820
  Transmission Date: 20100115
  Serious: Yes (Hospitalization)
  Sender: FDA-Public Use
  Company Number: None

PATIENT
  Age: 64 Year
  Sex: Male
  Weight: 106 kg

DRUGS (2)
  1. OXYBUTYNIN [Suspect]
     Indication: BLADDER SPASM
     Dosage: 5 MG TID PO
     Route: 048
     Dates: start: 20071219, end: 20090817
  2. PRAMIPEXOLE DIHYDROCHLORIDE [Suspect]
     Indication: RESTLESS LEGS SYNDROME
     Dosage: 0.5 MG HS PO
     Route: 048
     Dates: start: 20080428, end: 20090817

REACTIONS (1)
  - MENTAL STATUS CHANGES [None]
